FAERS Safety Report 24990943 (Version 1)
Quarter: 2025Q1

REPORT INFORMATION
  Report Type: Spontaneous
  Country: US (occurrence: None)
  Receive Date: 20250220
  Receipt Date: 20250220
  Transmission Date: 20250409
  Serious: Yes (unspecified)
  Sender: FDA-CTU
  Company Number: None

PATIENT
  Age: 72 Year
  Sex: Female
  Weight: 55.35 kg

DRUGS (7)
  1. PROLIA [Suspect]
     Active Substance: DENOSUMAB
     Indication: Osteoporosis
     Dates: start: 20221128, end: 20250127
  2. LEVOTHYROXINE [Concomitant]
     Active Substance: LEVOTHYROXINE
  3. AMLODIPINE [Concomitant]
     Active Substance: AMLODIPINE BESYLATE
  4. CALCIUM\VITAMIN D [Concomitant]
     Active Substance: CALCIUM\VITAMIN D
  5. 81 aspirin [Concomitant]
  6. LOSARTAN [Concomitant]
     Active Substance: LOSARTAN
  7. HAIR SKIN AND NAILS [Concomitant]

REACTIONS (1)
  - Stress fracture [None]

NARRATIVE: CASE EVENT DATE: 20240322
